FAERS Safety Report 9271048 (Version 1)
Quarter: 2013Q2

REPORT INFORMATION
  Report Type: Spontaneous
  Country: US (occurrence: US)
  Receive Date: 20130506
  Receipt Date: 20130506
  Transmission Date: 20140414
  Serious: Yes (Other)
  Sender: FDA-Public Use
  Company Number: US-JNJFOC-20130414122

PATIENT
  Age: 13 Year
  Sex: Male

DRUGS (9)
  1. DOXORUBICIN [Suspect]
     Indication: NON-RENAL CELL CARCINOMA OF KIDNEY
     Route: 042
  2. CARBOPLATIN [Suspect]
     Indication: NON-RENAL CELL CARCINOMA OF KIDNEY
     Route: 065
  3. GEMCITABINE [Suspect]
     Indication: NON-RENAL CELL CARCINOMA OF KIDNEY
     Route: 065
  4. PACLITAXEL [Suspect]
     Indication: NON-RENAL CELL CARCINOMA OF KIDNEY
     Route: 065
  5. BORTEZOMIB [Suspect]
     Indication: NON-RENAL CELL CARCINOMA OF KIDNEY
     Route: 065
  6. METHOTREXATE [Suspect]
     Indication: NON-RENAL CELL CARCINOMA OF KIDNEY
     Route: 065
  7. VINBLASTINE [Suspect]
     Indication: NON-RENAL CELL CARCINOMA OF KIDNEY
     Route: 065
  8. CISPLATIN [Suspect]
     Indication: NON-RENAL CELL CARCINOMA OF KIDNEY
     Route: 065
  9. RADIOTHERAPY [Suspect]
     Indication: NON-RENAL CELL CARCINOMA OF KIDNEY
     Route: 065

REACTIONS (2)
  - Non-renal cell carcinoma of kidney [Not Recovered/Not Resolved]
  - Off label use [Unknown]
